FAERS Safety Report 8272759-7 (Version None)
Quarter: 2012Q2

REPORT INFORMATION
  Report Type: 
  Country: None (occurrence: None)
  Receive Date: 20120411
  Receipt Date: 20111108
  Transmission Date: 20120825
  Serious: Yes (Hospitalization)
  Sender: FDA-Public Use
  Company Number: US-BIOGENIDEC-2011BI008396

PATIENT
  Age: 30 Year
  Sex: Female
  Weight: 66 kg

DRUGS (17)
  1. BUDESONIDE W/FORMOTEROL FUMARATE [Concomitant]
     Indication: ASTHMA
     Dates: start: 20100701
  2. HYDROCODONE BITARTRATE [Concomitant]
     Indication: BACK PAIN
     Dates: start: 20060101
  3. ALLEGRA [Concomitant]
     Indication: MULTIPLE ALLERGIES
     Dates: start: 20060101
  4. ALBUTEROL [Concomitant]
     Indication: ASTHMA
     Dates: start: 20071001
  5. VITAMIN B-12 [Concomitant]
     Indication: MEDICAL DIET
     Dates: start: 20090101
  6. METHYLPREDNISOLONE [Suspect]
     Indication: MULTIPLE SCLEROSIS
     Route: 042
     Dates: start: 20101229, end: 20110228
  7. TOPAMAX [Concomitant]
     Indication: MIGRAINE
     Dates: start: 20060101
  8. MULTAQ [Concomitant]
  9. TOPAMAX [Concomitant]
  10. FLONASE [Concomitant]
     Indication: MULTIPLE ALLERGIES
     Dates: start: 20060101
  11. LORTAB [Concomitant]
  12. LORTAB [Concomitant]
  13. CHOLECALCIFEROL [Concomitant]
     Route: 048
  14. TYSABRI [Concomitant]
     Indication: MULTIPLE SCLEROSIS
     Dates: start: 20101005
  15. VITAMIN D [Concomitant]
     Indication: MEDICAL DIET
     Dates: start: 20090101
  16. MAXALT [Concomitant]
     Dates: start: 20100701
  17. MULTI-VITAMIN [Concomitant]
     Indication: MEDICAL DIET
     Dates: start: 20090101

REACTIONS (1)
  - BRAIN ABSCESS [None]
